FAERS Safety Report 20132224 (Version 1)
Quarter: 2021Q4

REPORT INFORMATION
  Report Type: Spontaneous
  Country: US (occurrence: US)
  Receive Date: 20211130
  Receipt Date: 20211130
  Transmission Date: 20220303
  Serious: No
  Sender: FDA-Public Use
  Company Number: US-SA-SAC20211125001226

PATIENT

DRUGS (3)
  1. NEXVIAZYME [Suspect]
     Active Substance: AVALGLUCOSIDASE ALFA-NGPT
     Dosage: 20.1 MG/KG, 1X OVER 4 HOURS
     Route: 041
     Dates: start: 20211011, end: 20211011
  2. NEXVIAZYME [Suspect]
     Active Substance: AVALGLUCOSIDASE ALFA-NGPT
     Dosage: 20.1 MG/KG, 1X OVER 4 HOURS
     Route: 041
     Dates: start: 20211025, end: 20211025
  3. NEXVIAZYME [Suspect]
     Active Substance: AVALGLUCOSIDASE ALFA-NGPT
     Dosage: 20.1 MG/KG, 1X OVER 4 HOURS
     Route: 041
     Dates: start: 20211108, end: 20211108

REACTIONS (4)
  - Dry skin [Unknown]
  - Insomnia [Unknown]
  - Lip swelling [Unknown]
  - Pruritus [Unknown]

NARRATIVE: CASE EVENT DATE: 20211109
